FAERS Safety Report 6869899-3 (Version None)
Quarter: 2010Q3

REPORT INFORMATION
  Report Type: 
  Country: None (occurrence: None)
  Receive Date: 20100722
  Receipt Date: 20080908
  Transmission Date: 20110219
  Serious: Yes (Other)
  Sender: FDA-Public Use
  Company Number: US-PFIZER INC-2008076812

PATIENT
  Sex: Male
  Weight: 86.17 kg

DRUGS (6)
  1. CHANTIX [Suspect]
     Route: 048
     Dates: start: 20080726, end: 20080824
  2. PLAVIX [Suspect]
     Indication: CEREBROVASCULAR ACCIDENT
     Route: 048
     Dates: start: 20080805, end: 20080825
  3. AMLODIPINE [Concomitant]
     Route: 048
     Dates: start: 20080706
  4. LISINOPRIL [Concomitant]
     Route: 048
     Dates: start: 20080706
  5. SIMVASTATIN [Concomitant]
     Route: 048
     Dates: start: 20080706
  6. ACETYLSALICYLIC ACID [Concomitant]
     Route: 048
     Dates: start: 20080708, end: 20080805

REACTIONS (2)
  - PRURITUS [None]
  - URTICARIA [None]
